FAERS Safety Report 17616623 (Version 2)
Quarter: 2020Q2

REPORT INFORMATION
  Report Type: Spontaneous
  Country: US (occurrence: US)
  Receive Date: 20200402
  Receipt Date: 20200603
  Transmission Date: 20200713
  Serious: Yes (Other)
  Sender: FDA-Public Use
  Company Number: US-BRISTOL-MYERS SQUIBB COMPANY-BMS-2020-026860

PATIENT
  Age: 80 Year
  Sex: Female

DRUGS (3)
  1. PANTOPRAZOLE [Concomitant]
     Active Substance: PANTOPRAZOLE
     Indication: PRODUCT USED FOR UNKNOWN INDICATION
     Route: 065
  2. OPDIVO [Suspect]
     Active Substance: NIVOLUMAB
     Indication: RECTAL CANCER METASTATIC
     Dosage: 55 MILLIGRAM, Q3WK
     Route: 042
     Dates: start: 20200302
  3. YERVOY [Suspect]
     Active Substance: IPILIMUMAB
     Indication: RECTAL CANCER METASTATIC
     Dosage: 160 MILLIGRAM, Q3WK
     Route: 042
     Dates: start: 20200302

REACTIONS (1)
  - Toxicity to various agents [Unknown]

NARRATIVE: CASE EVENT DATE: 202003
